FAERS Safety Report 7989372-9 (Version None)
Quarter: 2011Q4

REPORT INFORMATION
  Report Type: 
  Country: None (occurrence: None)
  Receive Date: 20111216
  Receipt Date: 20111216
  Transmission Date: 20120403
  Serious: No
  Sender: FDA-Public Use
  Company Number: None

PATIENT
  Age: 37 Year
  Sex: Male

DRUGS (1)
  1. VALPROIC ACID [Suspect]
     Dates: start: 20091001, end: 20091130

REACTIONS (5)
  - HEPATITIS C [None]
  - HEPATOTOXICITY [None]
  - ABDOMINAL PAIN [None]
  - HEPATOMEGALY [None]
  - AUTOIMMUNE HEPATITIS [None]
